FAERS Safety Report 12168517 (Version 2)
Quarter: 2016Q1

REPORT INFORMATION
  Report Type: Report from Study
  Country: HU (occurrence: HU)
  Receive Date: 20160310
  Receipt Date: 20160328
  Transmission Date: 20160526
  Serious: Yes (Hospitalization, Other)
  Sender: FDA-Public Use
  Company Number: HU-BAYER-2015-484322

PATIENT
  Age: 59 Year
  Sex: Female
  Weight: 39 kg

DRUGS (4)
  1. STIVARGA [Suspect]
     Active Substance: REGORAFENIB
     Indication: COLORECTAL CANCER METASTATIC
     Dosage: 160 MG, QD (4X40 MG)
     Route: 048
  2. STIVARGA [Suspect]
     Active Substance: REGORAFENIB
     Indication: COLORECTAL CANCER METASTATIC
     Dosage: 120 MG, QD
     Route: 048
     Dates: end: 20160218
  3. STIVARGA [Suspect]
     Active Substance: REGORAFENIB
     Indication: COLORECTAL CANCER METASTATIC
     Dosage: 160 MG, QD
     Route: 048
     Dates: start: 20151204, end: 201512
  4. STIVARGA [Suspect]
     Active Substance: REGORAFENIB
     Indication: COLORECTAL CANCER METASTATIC
     Dosage: 3 X 40 MG
     Route: 048
     Dates: start: 201512, end: 2015

REACTIONS (16)
  - Colorectal cancer metastatic [Not Recovered/Not Resolved]
  - Skin lesion [Not Recovered/Not Resolved]
  - Decreased appetite [Not Recovered/Not Resolved]
  - Vomiting [Recovered/Resolved]
  - Abdominal pain [Not Recovered/Not Resolved]
  - Dehydration [Recovered/Resolved]
  - Fatigue [Recovered/Resolved]
  - Oral pain [Not Recovered/Not Resolved]
  - Acute kidney injury [Recovered/Resolved]
  - Decreased appetite [Recovered/Resolved]
  - Asthenia [Not Recovered/Not Resolved]
  - Gastrointestinal oedema [Not Recovered/Not Resolved]
  - Nausea [Recovered/Resolved]
  - Palmar-plantar erythrodysaesthesia syndrome [Recovered/Resolved]
  - Diarrhoea [Recovering/Resolving]
  - Nausea [Not Recovered/Not Resolved]

NARRATIVE: CASE EVENT DATE: 201512
